FAERS Safety Report 9510529 (Version 1)
Quarter: 2013Q3

REPORT INFORMATION
  Report Type: Report from Study
  Country: US (occurrence: US)
  Receive Date: 20130909
  Receipt Date: 20130909
  Transmission Date: 20140515
  Serious: Yes (Death, Other)
  Sender: FDA-Public Use
  Company Number: US-GENZYME-THYM-1004116

PATIENT
  Age: 48 Year
  Sex: Male

DRUGS (7)
  1. THYMOGLOBULIN [Suspect]
     Indication: BONE MARROW CONDITIONING REGIMEN
     Dosage: 3 MG/KG, ON DAY-5, QD
     Route: 065
  2. 2-CDA [Suspect]
     Indication: BONE MARROW CONDITIONING REGIMEN
     Dosage: 5 MG/M2, 5 DAYS,QD, (-10 TO -6)
     Route: 042
  3. THIOTEPA [Suspect]
     Indication: BONE MARROW CONDITIONING REGIMEN
     Dosage: 133 MG/M2, 3 DAYS, QD, (DAY-5 TO -3)
     Route: 042
  4. FLUDARA [Suspect]
     Indication: BONE MARROW CONDITIONING REGIMEN
     Dosage: UNK, DAY +46
     Route: 065
  5. TOTAL BODY IRRADIATION [Suspect]
     Indication: BONE MARROW CONDITIONING REGIMEN
     Dosage: UNK, DAY +46
     Route: 065
  6. CYCLOSPORINE [Concomitant]
     Indication: PRODUCT USED FOR UNKNOWN INDICATION
     Dosage: 2.5 MG/KG, BID ON DAY -1
     Route: 042
  7. CYCLOSPORINE [Concomitant]
     Dosage: 1.5 MG/KG, IV BID WITH TRANSITION TO ORAL DOSING
     Route: 065

REACTIONS (6)
  - Acute graft versus host disease in skin [Fatal]
  - Acute graft versus host disease [Fatal]
  - Infection [Fatal]
  - Thrombocytopenia [Unknown]
  - Neutropenia [Unknown]
  - Anaemia [Unknown]
